FAERS Safety Report 4462581-1 (Version None)
Quarter: 2004Q3

REPORT INFORMATION
  Report Type: 
  Country: None (occurrence: None)
  Receive Date: 20040924
  Receipt Date: 20040913
  Transmission Date: 20050211
  Serious: Yes (Other)
  Sender: FDA-Public Use
  Company Number: GB-2004-031927

PATIENT
  Age: 25 Year
  Sex: Female
  Weight: 83.3 kg

DRUGS (3)
  1. YASMIN [Suspect]
     Indication: ORAL CONTRACEPTION
     Dosage: 1 TAB(S), 21D/28D, ORAL
     Route: 048
     Dates: start: 20030601, end: 20040701
  2. CEFACLOR [Concomitant]
  3. CHLORAMPHENICOL [Concomitant]

REACTIONS (2)
  - PHOTOSENSITIVE RASH [None]
  - PRURITUS [None]
